FAERS Safety Report 10589215 (Version 1)
Quarter: 2014Q4

REPORT INFORMATION
  Report Type: Spontaneous
  Country: US (occurrence: US)
  Receive Date: 20141118
  Receipt Date: 20141118
  Transmission Date: 20150529
  Serious: Yes (Death, Hospitalization)
  Sender: FDA-Public Use
  Company Number: US-AMGEN-USASP2014087935

PATIENT
  Age: 59 Year
  Sex: Female
  Weight: 66.67 kg

DRUGS (1)
  1. PROCRIT [Suspect]
     Active Substance: ERYTHROPOIETIN
     Indication: PRODUCT USED FOR UNKNOWN INDICATION
     Dosage: UNK
     Route: 065
     Dates: end: 20130603

REACTIONS (2)
  - Death [Fatal]
  - B-cell lymphoma [Unknown]

NARRATIVE: CASE EVENT DATE: 20140723
